FAERS Safety Report 6441670-6 (Version None)
Quarter: 2009Q4

REPORT INFORMATION
  Report Type: 
  Country: None (occurrence: None)
  Receive Date: 20091116
  Receipt Date: 20091102
  Transmission Date: 20100525
  Serious: Yes (Hospitalization)
  Sender: FDA-Public Use
  Company Number: GB-AMGEN-US329304

PATIENT
  Age: 66 Year
  Sex: Male
  Weight: 63 kg

DRUGS (11)
  1. ENBREL [Suspect]
     Indication: RHEUMATOID ARTHRITIS
     Route: 058
     Dates: start: 20071126, end: 20080501
  2. AMITRIPTYLINE HCL [Concomitant]
  3. ASPIRIN [Concomitant]
     Route: 048
  4. CO-DYDRAMOL [Concomitant]
     Route: 048
  5. SIMAVASTATIN [Concomitant]
  6. PARACETAMOL [Concomitant]
  7. PERINDOPRIL [Concomitant]
  8. RISEDRONATE SODIUM [Concomitant]
  9. SENNA [Concomitant]
     Route: 048
  10. ADCAL D3 [Concomitant]
  11. METFORMIN HCL [Concomitant]

REACTIONS (5)
  - ARTHRALGIA [None]
  - JOINT SWELLING [None]
  - NIGHT SWEATS [None]
  - PYREXIA [None]
  - TUBERCULOSIS [None]
